FAERS Safety Report 21244820 (Version 1)
Quarter: 2022Q3

REPORT INFORMATION
  Report Type: Spontaneous
  Country: US (occurrence: None)
  Receive Date: 20220822
  Receipt Date: 20220822
  Transmission Date: 20221027
  Serious: No
  Sender: FDA-Public Use
  Company Number: None

PATIENT
  Age: 69 Year
  Sex: Male

DRUGS (1)
  1. REPATHA [Suspect]
     Active Substance: EVOLOCUMAB
     Indication: Arteriosclerosis coronary artery
     Route: 058
     Dates: start: 202206, end: 202208

REACTIONS (2)
  - Diarrhoea [None]
  - Therapy cessation [None]

NARRATIVE: CASE EVENT DATE: 20220722
